FAERS Safety Report 12911632 (Version 2)
Quarter: 2017Q1

REPORT INFORMATION
  Report Type: Report from Study
  Country: JP (occurrence: JP)
  Receive Date: 20161104
  Receipt Date: 20170120
  Transmission Date: 20170428
  Serious: Yes (Death, Life-Threatening, Other)
  Sender: FDA-Public Use
  Company Number: PHJP2016JP031498

PATIENT
  Age: 64 Year
  Sex: Female

DRUGS (9)
  1. FARYDAK [Suspect]
     Active Substance: PANOBINOSTAT
     Dosage: 10 MG, QD (6 DOSES PER CYCLE)
     Route: 048
     Dates: start: 20160713, end: 20160725
  2. DEXAMETHASONE. [Suspect]
     Active Substance: DEXAMETHASONE
     Dosage: UNK
     Route: 065
     Dates: start: 20160713, end: 20160725
  3. BORTEZOMIB [Suspect]
     Active Substance: BORTEZOMIB
     Indication: PLASMA CELL MYELOMA
     Dosage: 1.0 MG/M2, QW2
     Route: 058
     Dates: start: 20160623, end: 20160704
  4. OXYCODONE [Concomitant]
     Active Substance: OXYCODONE
     Indication: PLASMA CELL MYELOMA
     Dosage: 10 MG, UNK
     Route: 048
  5. DOMPERIDONE [Concomitant]
     Active Substance: DOMPERIDONE
     Indication: PLASMA CELL MYELOMA
     Dosage: 30 MG, UNK
     Route: 048
  6. MAGMITT [Concomitant]
     Active Substance: MAGNESIUM OXIDE
     Indication: CONSTIPATION
     Dosage: 1 G, UNK
     Route: 048
  7. FARYDAK [Suspect]
     Active Substance: PANOBINOSTAT
     Indication: PLASMA CELL MYELOMA
     Dosage: 10 MG, QD (6 DOSES PER CYCLE)
     Route: 048
     Dates: start: 20160623, end: 20160704
  8. BORTEZOMIB [Suspect]
     Active Substance: BORTEZOMIB
     Dosage: 1.0 MG/M2, QW2
     Route: 048
     Dates: start: 20160713, end: 20160725
  9. DEXAMETHASONE. [Suspect]
     Active Substance: DEXAMETHASONE
     Indication: PLASMA CELL MYELOMA
     Dosage: UNK
     Route: 065
     Dates: start: 20160623, end: 20160704

REACTIONS (18)
  - Pneumonia fungal [Fatal]
  - Malignant neoplasm progression [Fatal]
  - Neutropenia [Recovered/Resolved]
  - Hypokalaemia [Recovered/Resolved]
  - Hypocalcaemia [Recovered/Resolved]
  - Drug ineffective [Unknown]
  - Dyspnoea [Fatal]
  - Cardiac failure congestive [Not Recovered/Not Resolved]
  - Platelet count decreased [Recovered/Resolved]
  - Depressed level of consciousness [Unknown]
  - Anaemia [Not Recovered/Not Resolved]
  - Haemoglobin decreased [Unknown]
  - Depression [Unknown]
  - Back pain [Unknown]
  - C-reactive protein increased [Fatal]
  - Plasma cell myeloma [Fatal]
  - Pulmonary oedema [Not Recovered/Not Resolved]
  - Metastases to central nervous system [Unknown]

NARRATIVE: CASE EVENT DATE: 20160725
